FAERS Safety Report 17064716 (Version 1)
Quarter: 2019Q4

REPORT INFORMATION
  Report Type: Report from Study
  Country: DE (occurrence: DE)
  Receive Date: 20191122
  Receipt Date: 20191122
  Transmission Date: 20200122
  Serious: Yes (Hospitalization)
  Sender: FDA-Public Use
  Company Number: DE-BEH-2015053993

PATIENT
  Age: 76 Year
  Sex: Male
  Weight: 75 kg

DRUGS (8)
  1. SIMVASTATIN. [Concomitant]
     Active Substance: SIMVASTATIN
     Dosage: 20 MILLIGRAM, OD (40 MG: 0-0-1/2)
     Route: 065
  2. AMLODIPINE [Concomitant]
     Active Substance: AMLODIPINE BESYLATE
     Dosage: 5 MILLIGRAM, BID (1-0-1)
     Route: 065
  3. TORASEMID [Concomitant]
     Active Substance: TORSEMIDE
     Dosage: 10 MILLIGRAM, OD (1-0-0)
     Route: 065
  4. LISINOPRIL. [Concomitant]
     Active Substance: LISINOPRIL
     Dosage: 20 MILLIGRAM, OD (1-0-0)
     Route: 065
     Dates: end: 20140114
  5. CORTISONE [Suspect]
     Active Substance: CORTISONE
     Dosage: 250 MILLIGRAM, QD
     Route: 042
     Dates: start: 20140114, end: 20140116
  6. BERINERT [Suspect]
     Active Substance: HUMAN C1-ESTERASE INHIBITOR
     Indication: ANGIOEDEMA
     Dosage: 20 INTERNATIONAL UNIT/KILOGRAM (20 IU/KG ROUNDED TO NEXT 500 IU VIAL), SINGLE
     Route: 042
     Dates: start: 20140114
  7. BERINERT [Suspect]
     Active Substance: HUMAN C1-ESTERASE INHIBITOR
     Indication: ANGIOEDEMA
     Dosage: 20 INTERNATIONAL UNIT/KILOGRAM (20 IU/KG ROUNDED TO NEXT 500 IU VIAL), SINGLE
     Route: 042
     Dates: start: 20140114
  8. CLEMASTIN [Concomitant]
     Active Substance: CLEMASTINE
     Dosage: 2 MILLIGRAM, OD
     Route: 042
     Dates: start: 20140114, end: 20140114

REACTIONS (3)
  - Hypertension [Recovered/Resolved]
  - No adverse event [Unknown]
  - Product use in unapproved indication [Unknown]

NARRATIVE: CASE EVENT DATE: 20140117
